FAERS Safety Report 8869535 (Version 1)
Quarter: 2012Q4

REPORT INFORMATION
  Report Type: 
  Country: US (occurrence: US)
  Receive Date: 20121026
  Receipt Date: 20121026
  Transmission Date: 20130627
  Serious: No
  Sender: FDA-Public Use
  Company Number: US-AMGEN-USASP2012042697

PATIENT
  Age: 54 Year
  Sex: Male
  Weight: 73.47 kg

DRUGS (4)
  1. ENBREL [Suspect]
     Indication: PRODUCT USED FOR UNKNOWN INDICATION
     Dosage: 50 mg, 2 times/wk
     Route: 058
  2. PREDNISONE [Concomitant]
     Dosage: 10 mg, UNK
  3. FISH OIL [Concomitant]
  4. VITAMIN D /00107901/ [Concomitant]
     Dosage: 1000 unit, UNK

REACTIONS (3)
  - Dyspnoea [Unknown]
  - Pyrexia [Unknown]
  - Pneumonia [Unknown]
